FAERS Safety Report 8911387 (Version 2)
Quarter: 2012Q4

REPORT INFORMATION
  Report Type: 
  Country: BR (occurrence: BR)
  Receive Date: 20121116
  Receipt Date: 20121127
  Transmission Date: 20130627
  Serious: Yes (Hospitalization)
  Sender: FDA-Public Use
  Company Number: BR-JNJFOC-2008023737

PATIENT
  Age: 21 Month
  Sex: Male

DRUGS (3)
  1. CETIRIZINE HYDROCHLORIDE [Suspect]
     Route: 048
  2. CETIRIZINE HYDROCHLORIDE [Suspect]
     Indication: VIRAL INFECTION
     Dosage: Daily Dose Text: 3 ML
     Route: 048
     Dates: start: 20080820, end: 20080820
  3. FLUTICASONE PROPIONATE [Suspect]
     Indication: COUGH
     Dosage: Daily Dose Text: UNKNOWN
     Route: 065
     Dates: start: 200807, end: 2008

REACTIONS (4)
  - Oculogyric crisis [Not Recovered/Not Resolved]
  - Pyrexia [Not Recovered/Not Resolved]
  - Rhinorrhoea [Not Recovered/Not Resolved]
  - Cough [Not Recovered/Not Resolved]
